FAERS Safety Report 7927680-8 (Version None)
Quarter: 2011Q4

REPORT INFORMATION
  Report Type: 
  Country: None (occurrence: None)
  Receive Date: 20111116
  Receipt Date: 20111104
  Transmission Date: 20120403
  Serious: Yes (Other)
  Sender: FDA-Public Use
  Company Number: 2011-0525-SPO

PATIENT
  Age: 46 Year
  Sex: Female

DRUGS (1)
  1. ESTRADIOL [Suspect]
     Indication: HORMONE REPLACEMENT THERAPY
     Dosage: TRANSDERMAL
     Route: 062
     Dates: end: 20110901

REACTIONS (4)
  - HOT FLUSH [None]
  - NAUSEA [None]
  - DISORIENTATION [None]
  - PRODUCT SUBSTITUTION ISSUE [None]
